FAERS Safety Report 4360747-2 (Version None)
Quarter: 2004Q2

REPORT INFORMATION
  Report Type: 
  Country: None (occurrence: None)
  Receive Date: 20040519
  Receipt Date: 20040513
  Transmission Date: 20050107
  Serious: Yes (Disabling)
  Sender: FDA-Public Use
  Company Number: 04-05-0680

PATIENT
  Age: 20 Year
  Sex: Female
  Weight: 70 kg

DRUGS (1)
  1. METRONIDAZOLE [Suspect]
     Indication: TOOTHACHE
     Dosage: 400 MG TDS ORAL
     Route: 048
     Dates: start: 20030501, end: 20030514

REACTIONS (3)
  - MENTAL DISORDER [None]
  - PANIC ATTACK [None]
  - POST VIRAL FATIGUE SYNDROME [None]
